FAERS Safety Report 18137067 (Version 1)
Quarter: 2020Q3

REPORT INFORMATION
  Report Type: Spontaneous
  Country: IT (occurrence: IT)
  Receive Date: 20200811
  Receipt Date: 20200811
  Transmission Date: 20201103
  Serious: Yes (Other)
  Sender: FDA-Public Use
  Company Number: IT-SAMSUNG BIOEPIS-SB-2020-21125

PATIENT
  Age: 41 Year
  Sex: Male
  Weight: 80 kg

DRUGS (3)
  1. FLIXABI [Suspect]
     Active Substance: INFLIXIMAB
     Indication: RHEUMATOID ARTHRITIS
     Dosage: UNKNOWN
     Route: 042
     Dates: start: 20180701, end: 20190905
  2. FOLINA [Concomitant]
     Indication: RHEUMATOID ARTHRITIS
     Route: 048
  3. REUMAFLEX [Concomitant]
     Indication: RHEUMATOID ARTHRITIS
     Dosage: INJECTABLE SOLUTION, PRE?FILLED SYRINGE
     Route: 058

REACTIONS (2)
  - Therapeutic response shortened [Unknown]
  - Rheumatoid arthritis [Unknown]

NARRATIVE: CASE EVENT DATE: 20190917
